FAERS Safety Report 5149384-X (Version None)
Quarter: 2006Q4

REPORT INFORMATION
  Report Type: 
  Country: None (occurrence: None)
  Receive Date: 20061113
  Receipt Date: 20051212
  Transmission Date: 20070319
  Serious: No
  Sender: FDA-Public Use
  Company Number: 428267

PATIENT
  Age: 65 Year
  Sex: Female

DRUGS (4)
  1. COREG [Suspect]
     Indication: CARDIOMYOPATHY
     Dosage: 3.125MG PER DAY
     Route: 048
     Dates: start: 20051114
  2. ASPIRIN [Concomitant]
  3. LASIX [Concomitant]
  4. VITAMIN B-12 [Concomitant]

REACTIONS (7)
  - CHEST DISCOMFORT [None]
  - DRUG INEFFECTIVE [None]
  - MALAISE [None]
  - PAIN IN EXTREMITY [None]
  - PERIPHERAL COLDNESS [None]
  - THROAT TIGHTNESS [None]
  - WHEEZING [None]
